FAERS Safety Report 10535514 (Version 1)
Quarter: 2014Q4

REPORT INFORMATION
  Report Type: Spontaneous
  Country: US (occurrence: US)
  Receive Date: 20141022
  Receipt Date: 20141022
  Transmission Date: 20150529
  Serious: No
  Sender: FDA-Public Use
  Company Number: US-RECKITT BENCKISER PHARMACEUTICAL, INC-RB-58387-2013

PATIENT

DRUGS (8)
  1. BUPRENORPHINE GENERIC [Suspect]
     Active Substance: BUPRENORPHINE
     Indication: DRUG DEPENDENCE
     Route: 064
     Dates: start: 201209, end: 20130522
  2. TOBACCO [Suspect]
     Active Substance: TOBACCO LEAF
     Indication: NICOTINE DEPENDENCE
     Dosage: 20 CIGARETTES IN THREE DAYS
     Route: 064
     Dates: start: 201208, end: 20130522
  3. ZANTAC [Suspect]
     Active Substance: RANITIDINE HYDROCHLORIDE
     Dosage: 1 TABLET DAILY
     Route: 063
     Dates: start: 20130522, end: 201306
  4. TOBACCO [Suspect]
     Active Substance: TOBACCO LEAF
     Dosage: 20 CIGARETTES IN THREE DAYS
     Route: 063
     Dates: start: 20130522, end: 201306
  5. ZANTAC [Suspect]
     Active Substance: RANITIDINE HYDROCHLORIDE
     Indication: DUODENOGASTRIC REFLUX
     Dosage: 1 TABLET DAILY
     Route: 064
     Dates: start: 201208, end: 20130522
  6. PRENATAL VITAMINS [Suspect]
     Active Substance: VITAMINS
     Indication: PREGNANCY
     Dosage: 1 TABLET DAILY
     Route: 064
     Dates: start: 201208, end: 20130522
  7. SUBOXONE [Suspect]
     Active Substance: BUPRENORPHINE HYDROCHLORIDE\NALOXONE HYDROCHLORIDE
     Indication: DRUG DEPENDENCE
     Dosage: SUBOXONE FILM
     Route: 064
     Dates: start: 201208, end: 201209
  8. BUPRENORPHINE GENERIC [Suspect]
     Active Substance: BUPRENORPHINE
     Route: 063
     Dates: start: 20130522, end: 201306

REACTIONS (5)
  - Infantile colic [Recovered/Resolved]
  - Exposure during breast feeding [Recovered/Resolved]
  - Jaundice neonatal [Recovered/Resolved]
  - Irritability [Recovered/Resolved]
  - Foetal exposure during pregnancy [Recovered/Resolved]

NARRATIVE: CASE EVENT DATE: 201208
